FAERS Safety Report 18550015 (Version 1)
Quarter: 2020Q4

REPORT INFORMATION
  Report Type: Spontaneous
  Country: DE (occurrence: DE)
  Receive Date: 20201126
  Receipt Date: 20201126
  Transmission Date: 20210114
  Serious: Yes (Hospitalization)
  Sender: FDA-Public Use
  Company Number: NVSC2020DE310113

PATIENT
  Age: 80 Year
  Sex: Male
  Weight: 93 kg

DRUGS (21)
  1. REVLIMID [Suspect]
     Active Substance: LENALIDOMIDE
     Dosage: 10 MG
     Route: 048
     Dates: start: 20160407, end: 20160414
  2. RAMILICH [Concomitant]
     Active Substance: RAMIPRIL
     Dosage: 375 MG, QD
     Route: 048
     Dates: start: 20101007
  3. MARCUPHEN [Concomitant]
     Active Substance: PHENPROCOUMON
     Indication: PROPHYLAXIS
     Dosage: 3 MG
     Route: 048
     Dates: start: 2010
  4. ROCEFIN [Concomitant]
     Active Substance: CEFTRIAXONE SODIUM
     Indication: PYREXIA
     Dosage: 1 G, QD
     Route: 041
     Dates: start: 201603, end: 201603
  5. ADENURIC [Concomitant]
     Active Substance: FEBUXOSTAT
     Indication: CHRONIC KIDNEY DISEASE
     Dosage: 80 MG, QD
     Route: 048
     Dates: start: 20130404
  6. INSPRA [Concomitant]
     Active Substance: EPLERENONE
     Indication: BLOOD PRESSURE INCREASED
     Dosage: 25 MG, QD
     Route: 048
     Dates: start: 20150323
  7. ZOPICLON BETA [Concomitant]
     Indication: PROPHYLAXIS
     Dosage: 7.5 MG
     Route: 048
     Dates: start: 20101007
  8. INSUMAN BASAL [Concomitant]
     Active Substance: INSULIN HUMAN
     Indication: DIABETES MELLITUS
     Dosage: 1 UNK, QD (8 I.E.)
     Route: 058
     Dates: start: 20130404
  9. PANTOPRAZOL HENNIG [Concomitant]
     Indication: PROPHYLAXIS
     Dosage: 20 MG, QD
     Route: 048
     Dates: start: 20101007
  10. RAMILICH [Concomitant]
     Active Substance: RAMIPRIL
     Indication: BLOOD PRESSURE INCREASED
     Dosage: 2.5 MG, QD
     Route: 048
     Dates: start: 20101007
  11. METOPROLOL SUCCINAT BETA [Concomitant]
     Active Substance: METOPROLOL SUCCINATE
     Indication: BLOOD PRESSURE INCREASED
     Dosage: 47.5 MG, QD
     Route: 048
     Dates: start: 20120912
  12. FUROBETA [Concomitant]
     Active Substance: FUROSEMIDE
     Indication: CARDIAC FAILURE
     Dosage: 375 MG, QD
     Route: 048
     Dates: start: 20101007
  13. DIGIMERCK [Concomitant]
     Active Substance: DIGITOXIN
     Indication: CARDIAC FAILURE
     Dosage: 0.1 MG, QD
     Route: 048
     Dates: start: 20130404
  14. RAMILICH [Concomitant]
     Active Substance: RAMIPRIL
     Dosage: 20 MG, QD
     Route: 048
     Dates: start: 20101007
  15. HCT-BETA [Concomitant]
     Indication: CARDIAC FAILURE
     Dosage: 25 MG, QD
     Route: 048
     Dates: start: 20130416
  16. DEXAMETHASONE. [Suspect]
     Active Substance: DEXAMETHASONE
     Dosage: 12 MG
     Route: 065
     Dates: start: 20160414
  17. LANTUS [Concomitant]
     Active Substance: INSULIN GLARGINE
     Indication: DIABETES MELLITUS
     Dosage: 6I.E.
     Route: 058
     Dates: start: 20130404
  18. PROPAPHENIN [Concomitant]
     Indication: CARDIAC FAILURE
     Dosage: 450 MG, QD
     Route: 048
     Dates: start: 2013
  19. DEXAMETHASONE. [Suspect]
     Active Substance: DEXAMETHASONE
     Indication: PLASMA CELL MYELOMA
     Dosage: 20 MG
     Route: 065
     Dates: start: 20160219
  20. DEXAMETHASONE. [Suspect]
     Active Substance: DEXAMETHASONE
     Dosage: 12 MG
     Route: 065
     Dates: start: 20160407, end: 20160414
  21. REVLIMID [Suspect]
     Active Substance: LENALIDOMIDE
     Indication: PLASMA CELL MYELOMA
     Route: 048
     Dates: start: 20160219, end: 20160302

REACTIONS (4)
  - General physical health deterioration [Recovered/Resolved]
  - Dyspnoea [Recovered/Resolved]
  - Decreased appetite [Not Recovered/Not Resolved]
  - Pain [Recovered/Resolved]

NARRATIVE: CASE EVENT DATE: 20160414
